FAERS Safety Report 11075990 (Version 1)
Quarter: 2015Q2

REPORT INFORMATION
  Report Type: Spontaneous
  Country: US (occurrence: US)
  Receive Date: 20150429
  Receipt Date: 20150429
  Transmission Date: 20150821
  Serious: Yes (Other)
  Sender: FDA-Public Use
  Company Number: US-BAYER-2015-163601

PATIENT
  Age: 16 Year
  Sex: Female
  Weight: 51.7 kg

DRUGS (1)
  1. MENSTRIDOL [Suspect]
     Active Substance: NAPROXEN SODIUM
     Indication: DYSMENORRHOEA
     Dosage: 1 DF, ONCE
     Route: 048
     Dates: start: 20150420, end: 20150420

REACTIONS (6)
  - Pallor [Not Recovered/Not Resolved]
  - Sneezing [Recovered/Resolved]
  - Eye swelling [Not Recovered/Not Resolved]
  - Blister [Recovered/Resolved]
  - Dyspnoea [Recovered/Resolved]
  - Eye swelling [Not Recovered/Not Resolved]

NARRATIVE: CASE EVENT DATE: 20150420
